FAERS Safety Report 6698669-4 (Version None)
Quarter: 2010Q2

REPORT INFORMATION
  Report Type: 
  Country: None (occurrence: None)
  Receive Date: 20100427
  Receipt Date: 20100415
  Transmission Date: 20101027
  Serious: Yes (Other)
  Sender: FDA-Public Use
  Company Number: PHHY2010FI23461

PATIENT
  Age: 74 Year
  Sex: Male

DRUGS (1)
  1. EXFORGE HCT [Suspect]
     Indication: HYPERTONIA
     Dosage: 1 DF (160/10/12.5 MG), QD (IN THE MORNING)
     Route: 048

REACTIONS (2)
  - HEART RATE INCREASED [None]
  - PLEURISY [None]
